FAERS Safety Report 4923766-0 (Version None)
Quarter: 2006Q1

REPORT INFORMATION
  Report Type: 
  Country: None (occurrence: None)
  Receive Date: 20060227
  Receipt Date: 20050412
  Transmission Date: 20060701
  Serious: Yes (Death)
  Sender: FDA-Public Use
  Company Number: US-MERCK-0504USA02224

PATIENT
  Age: 82 Year
  Sex: Female
  Weight: 48 kg

DRUGS (2)
  1. VIOXX [Suspect]
     Route: 048
     Dates: start: 19990101, end: 20021101
  2. VIOXX [Suspect]
     Route: 048
     Dates: start: 19990101, end: 20021101

REACTIONS (3)
  - DEATH [None]
  - HERNIA [None]
  - PRESCRIBED OVERDOSE [None]
